FAERS Safety Report 13587404 (Version 12)
Quarter: 2019Q4

REPORT INFORMATION
  Report Type: Report from Study
  Country: US (occurrence: US)
  Receive Date: 20170526
  Receipt Date: 20191015
  Transmission Date: 20200122
  Serious: Yes (Hospitalization, Other)
  Sender: FDA-Public Use
  Company Number: US-ACTELION-A-US2015-129224

PATIENT
  Age: 54 Year
  Sex: Female
  Weight: 61.22 kg

DRUGS (11)
  1. VELETRI [Suspect]
     Active Substance: EPOPROSTENOL
     Dosage: UNK
     Route: 042
  2. WARFARIN [Concomitant]
     Active Substance: WARFARIN
  3. VELETRI [Suspect]
     Active Substance: EPOPROSTENOL
     Indication: PULMONARY HYPERTENSION
     Dosage: 42.5 NG/KG, PER MIN
     Route: 042
  4. SILDENAFIL. [Concomitant]
     Active Substance: SILDENAFIL
  5. AMLODIPINE [Concomitant]
     Active Substance: AMLODIPINE BESYLATE
  6. OPSUMIT [Suspect]
     Active Substance: MACITENTAN
     Indication: PULMONARY HYPERTENSION
     Dosage: 10 MG, QD
     Route: 048
     Dates: start: 20151120
  7. VELETRI [Suspect]
     Active Substance: EPOPROSTENOL
     Dosage: 15 NG/KG, PER MIN
     Route: 042
     Dates: start: 20150430
  8. LASIX [Concomitant]
     Active Substance: FUROSEMIDE
     Dosage: 40 MG, QD
  9. VELETRI [Suspect]
     Active Substance: EPOPROSTENOL
     Dosage: 27 NG/KG, PER MIN
     Route: 042
  10. VELETRI [Suspect]
     Active Substance: EPOPROSTENOL
     Dosage: 32 NG/KG, PER MIN
     Route: 042
  11. OPSUMIT [Suspect]
     Active Substance: MACITENTAN
     Dosage: 10 MG, QD
     Route: 048

REACTIONS (46)
  - Infection [Unknown]
  - Migraine [Not Recovered/Not Resolved]
  - Stress [Unknown]
  - Rash pruritic [Unknown]
  - Dyspnoea [Unknown]
  - Catheter site erythema [Unknown]
  - Blood count abnormal [Unknown]
  - Pain in jaw [Unknown]
  - Epistaxis [Unknown]
  - Joint swelling [Unknown]
  - Oedema peripheral [Unknown]
  - Transfusion [Unknown]
  - Device issue [Unknown]
  - Nasopharyngitis [Unknown]
  - Ear discomfort [Unknown]
  - Chest pain [Unknown]
  - Ill-defined disorder [Unknown]
  - Pulmonary arterial pressure increased [Unknown]
  - Culture negative [Unknown]
  - Device occlusion [Unknown]
  - Panic attack [Unknown]
  - Joint injury [Unknown]
  - Pneumonia [Unknown]
  - Rash [Unknown]
  - Device dislocation [Recovered/Resolved]
  - Arteriovenous malformation [Unknown]
  - Gallbladder disorder [Unknown]
  - Raynaud^s phenomenon [Unknown]
  - Ear infection [Unknown]
  - Dyspnoea exertional [Unknown]
  - Product dose omission [Unknown]
  - Device alarm issue [Unknown]
  - Catheter management [Unknown]
  - Catheter site discolouration [Recovering/Resolving]
  - Weight decreased [Not Recovered/Not Resolved]
  - Feeling abnormal [Unknown]
  - Cough [Unknown]
  - Headache [Unknown]
  - Flushing [Unknown]
  - Anxiety [Unknown]
  - Haemorrhage [Unknown]
  - Blood cholesterol increased [Unknown]
  - Diarrhoea [Not Recovered/Not Resolved]
  - Catheter site scab [Unknown]
  - Insomnia [Unknown]
  - Catheter site pain [Unknown]

NARRATIVE: CASE EVENT DATE: 20160412
